FAERS Safety Report 6225775-0 (Version None)
Quarter: 2009Q2

REPORT INFORMATION
  Report Type: 
  Country: None (occurrence: None)
  Receive Date: 20090612
  Receipt Date: 20090423
  Transmission Date: 20091009
  Serious: No
  Sender: FDA-Public Use
  Company Number: US-ABBOTT-09P-163-0569788-00

PATIENT
  Sex: Female
  Weight: 41.768 kg

DRUGS (8)
  1. HUMIRA [Suspect]
     Indication: RHEUMATOID ARTHRITIS
     Route: 058
     Dates: start: 20081101, end: 20081201
  2. HUMIRA [Suspect]
     Route: 058
     Dates: start: 20090201
  3. METHOTREXATE [Concomitant]
     Indication: DRUG USE FOR UNKNOWN INDICATION
     Dates: start: 20081201, end: 20090401
  4. METHOTREXATE [Concomitant]
     Dates: end: 20081201
  5. MOBIC [Concomitant]
     Indication: DRUG USE FOR UNKNOWN INDICATION
  6. PLAQUENIL [Concomitant]
     Indication: DRUG USE FOR UNKNOWN INDICATION
  7. FOLIC ACID [Concomitant]
     Indication: DRUG USE FOR UNKNOWN INDICATION
  8. ASPIRIN [Concomitant]
     Indication: DRUG USE FOR UNKNOWN INDICATION
     Route: 048

REACTIONS (8)
  - COUGH [None]
  - EPISTAXIS [None]
  - HYPERSENSITIVITY [None]
  - INJECTION SITE IRRITATION [None]
  - OCULAR HYPERAEMIA [None]
  - PERTUSSIS [None]
  - RHINORRHOEA [None]
  - SNEEZING [None]
